FAERS Safety Report 8067202-7 (Version None)
Quarter: 2012Q1

REPORT INFORMATION
  Report Type: 
  Country: None (occurrence: None)
  Receive Date: 20120124
  Receipt Date: 20120117
  Transmission Date: 20120608
  Serious: Yes (Hospitalization)
  Sender: FDA-Public Use
  Company Number: CA-GLAXOSMITHKLINE-A0961820A

PATIENT
  Sex: Female

DRUGS (8)
  1. XELODA [Suspect]
     Indication: PRODUCT USED FOR UNKNOWN INDICATION
     Route: 065
  2. LIPITOR [Concomitant]
     Dosage: 20MG PER DAY
  3. FLEXERIL [Concomitant]
     Dosage: 10MG PER DAY
  4. TYKERB [Suspect]
     Indication: BREAST CANCER METASTATIC
     Dosage: 750MG PER DAY
     Route: 048
     Dates: start: 20091125
  5. HYDROMORPHONE HCL [Concomitant]
     Dosage: 8MG PER DAY
  6. PANTOPRAZOLE SODIUM [Concomitant]
     Dosage: 40MG PER DAY
  7. FRAGMIN [Concomitant]
  8. HALOPERIDOL [Concomitant]
     Dosage: 1MG PER DAY

REACTIONS (2)
  - PULMONARY EMBOLISM [None]
  - ASTHENIA [None]
